FAERS Safety Report 25377461 (Version 1)
Quarter: 2025Q2

REPORT INFORMATION
  Report Type: Spontaneous
  Country: JP (occurrence: JP)
  Receive Date: 20250530
  Receipt Date: 20250530
  Transmission Date: 20250717
  Serious: Yes (Other)
  Sender: MERCK SHARP & DOHME LLC
  Company Number: JP-009507513-2290301

PATIENT
  Age: 64 Year
  Sex: Male

DRUGS (3)
  1. PREVYMIS [Suspect]
     Active Substance: LETERMOVIR
     Indication: Antiviral prophylaxis
     Dates: start: 202306, end: 202310
  2. DORIPENEM MONOHYDRATE [Concomitant]
     Active Substance: DORIPENEM MONOHYDRATE
     Dates: start: 20230607
  3. TEICOPLANIN [Concomitant]
     Active Substance: TEICOPLANIN
     Dates: start: 20230608, end: 20230612

REACTIONS (3)
  - Human herpesvirus 6 viraemia [Recovering/Resolving]
  - Toxicity to various agents [Recovered/Resolved]
  - Cytomegalovirus test positive [Recovered/Resolved]

NARRATIVE: CASE EVENT DATE: 20230608
